FAERS Safety Report 5226306-4 (Version None)
Quarter: 2007Q1

REPORT INFORMATION
  Report Type: 
  Country: None (occurrence: None)
  Receive Date: 20070201
  Receipt Date: 20070124
  Transmission Date: 20070707
  Serious: Yes (Other)
  Sender: FDA-Public Use
  Company Number: US-ELI_LILLY_AND_COMPANY-US200701003841

PATIENT
  Age: 29 Year
  Sex: Male

DRUGS (3)
  1. ZYPREXA [Suspect]
     Indication: AFFECTIVE DISORDER
     Dosage: 20 MG, DAILY (1/D)
     Dates: start: 20050120
  2. COUMADIN [Concomitant]
     Dosage: 6 MG, DAILY (1/D)
  3. METOPROLOL TARTRATE [Concomitant]
     Dosage: 25 MG, DAILY (1/D)

REACTIONS (1)
  - WHITE BLOOD CELL COUNT DECREASED [None]
